FAERS Safety Report 19711582 (Version 1)
Quarter: 2021Q3

REPORT INFORMATION
  Report Type: Not Available
  Country: None (occurrence: None)
  Receive Date: 20210817
  Receipt Date: 20210817
  Transmission Date: 20211014
  Serious: No
  Sender: FDA-Public Use
  Company Number: US-AKORN-170320

PATIENT
  Age: 2 Year
  Sex: Female

DRUGS (1)
  1. ATROPINE SULFATE OPHTHALMIC SOLUTION [Suspect]
     Active Substance: ATROPINE SULFATE

REACTIONS (3)
  - Ocular hyperaemia [Recovered/Resolved]
  - Hypersensitivity [Recovered/Resolved]
  - Vision blurred [Recovered/Resolved]
